FAERS Safety Report 6660224-X (Version None)
Quarter: 2010Q1

REPORT INFORMATION
  Report Type: 
  Country: None (occurrence: None)
  Receive Date: 20100331
  Receipt Date: 20100309
  Transmission Date: 20100710
  Serious: No
  Sender: FDA-Public Use
  Company Number: 2009BI030207

PATIENT
  Sex: Female

DRUGS (2)
  1. TYSABRI [Suspect]
     Indication: MULTIPLE SCLEROSIS
     Route: 042
     Dates: start: 20080220, end: 20081001
  2. TYSABRI [Suspect]
     Route: 042
     Dates: start: 20090722, end: 20090817

REACTIONS (4)
  - HEMIPARESIS [None]
  - SINUSITIS [None]
  - STRESS [None]
  - VISUAL IMPAIRMENT [None]
